FAERS Safety Report 25159901 (Version 1)
Quarter: 2025Q2

REPORT INFORMATION
  Report Type: Spontaneous
  Country: US (occurrence: US)
  Receive Date: 20250404
  Receipt Date: 20250404
  Transmission Date: 20250717
  Serious: No
  Sender: NOVITIUM PHARMA
  Company Number: US-NOVITIUMPHARMA-2025USNVP00646

PATIENT
  Age: 79 Year
  Sex: Female
  Weight: 105 kg

DRUGS (7)
  1. PRUCALOPRIDE [Suspect]
     Active Substance: PRUCALOPRIDE
     Indication: Constipation
     Route: 048
     Dates: start: 20250226, end: 20250302
  2. PRUCALOPRIDE [Suspect]
     Active Substance: PRUCALOPRIDE
     Route: 048
  3. AMITRIPTYLINE [Concomitant]
     Active Substance: AMITRIPTYLINE
     Indication: Insomnia
     Route: 048
     Dates: start: 20250301
  4. RESTASIS [Concomitant]
     Active Substance: CYCLOSPORINE
     Indication: Dry eye
  5. PROAIR HFA [Concomitant]
     Active Substance: ALBUTEROL SULFATE
     Indication: Asthma
     Route: 045
  6. Duaneb [Concomitant]
     Indication: Asthma
  7. MONTELUKAST [Concomitant]
     Active Substance: MONTELUKAST
     Indication: Asthma

REACTIONS (12)
  - Gait inability [Unknown]
  - Dysstasia [Unknown]
  - Feeling abnormal [Unknown]
  - Vision blurred [Unknown]
  - Sight disability [Unknown]
  - Feeling abnormal [Unknown]
  - Adverse drug reaction [Unknown]
  - Drug interaction [Unknown]
  - Intentional underdose [Unknown]
  - Nausea [Unknown]
  - Dizziness [Unknown]
  - Fatigue [Unknown]
